FAERS Safety Report 9676253 (Version 1)
Quarter: 2013Q4

REPORT INFORMATION
  Report Type: Spontaneous
  Country: US (occurrence: US)
  Receive Date: 20131107
  Receipt Date: 20131107
  Transmission Date: 20140711
  Serious: No
  Sender: FDA-Public Use
  Company Number: US-ENDO PHARMACEUTICALS INC.-HCDA20120111

PATIENT
  Age: 74 Year
  Sex: Female

DRUGS (3)
  1. HYDROCODONE/ACETAMINOPHEN [Suspect]
     Indication: ARTHRITIS
     Dosage: 5/325 MG
     Dates: start: 20121026
  2. LISINOPRIL [Concomitant]
     Indication: HYPERTENSION
  3. HYDROCODONE/ACETAMINOPHEN [Concomitant]
     Indication: ARTHRITIS
     Dosage: 5/500 MG
     Route: 048
     Dates: end: 201210

REACTIONS (3)
  - Headache [Not Recovered/Not Resolved]
  - Abdominal discomfort [Not Recovered/Not Resolved]
  - Drug effect decreased [Not Recovered/Not Resolved]
